FAERS Safety Report 19002134 (Version 1)
Quarter: 2021Q1

REPORT INFORMATION
  Report Type: Spontaneous
  Country: US (occurrence: US)
  Receive Date: 20210312
  Receipt Date: 20210312
  Transmission Date: 20210420
  Serious: No
  Sender: FDA-Public Use
  Company Number: None

PATIENT
  Age: 46 Year
  Sex: Female

DRUGS (7)
  1. MAGNESIUM [Concomitant]
     Active Substance: MAGNESIUM
  2. VITAMIN B COMPLEX [Concomitant]
     Active Substance: CYANOCOBALAMIN\DEXPANTHENOL\NIACINAMIDE\PYRIDOXINE HYDROCHLORIDE\RIBOFLAVIN 5^-PHOSPHATE SODIUM\THIAMINE HYDROCHLORIDE\VITAMIN B COMPLEX
  3. ADDERALL [Concomitant]
     Active Substance: AMPHETAMINE ASPARTATE\AMPHETAMINE SULFATE\DEXTROAMPHETAMINE SACCHARATE\DEXTROAMPHETAMINE SULFATE
  4. VITAMIN D3/K2 [Concomitant]
  5. ESTROGEN PATCH [Concomitant]
     Active Substance: ESTRADIOL
  6. INJECTAFER [Suspect]
     Active Substance: FERRIC CARBOXYMALTOSE
     Indication: IRON DEFICIENCY ANAEMIA
     Dosage: ?          QUANTITY:1 UNKNOWN;OTHER ROUTE:INFUSION?
     Dates: start: 20210205, end: 20210205
  7. BIOTIN [Concomitant]
     Active Substance: BIOTIN

REACTIONS (5)
  - Pain [None]
  - Fatigue [None]
  - Asthenia [None]
  - Hypophosphataemia [None]
  - Headache [None]

NARRATIVE: CASE EVENT DATE: 20210305
